FAERS Safety Report 4659281-1 (Version None)
Quarter: 2005Q2

REPORT INFORMATION
  Report Type: 
  Country: None (occurrence: None)
  Receive Date: 20050510
  Receipt Date: 20050426
  Transmission Date: 20051028
  Serious: Yes (Hospitalization)
  Sender: FDA-Public Use
  Company Number: 2005-01447

PATIENT
  Age: 26 Year
  Sex: Male

DRUGS (3)
  1. MIRTAZAPINE [Suspect]
     Dosage: 60 MG, DAILY, ORAL
     Route: 048
  2. VENLAFAXINE HCL [Suspect]
     Dosage: 75 MG, DAILY, ORAL; 150 MG, DAILY, ORAL
     Route: 048
  3. VENLAFAXINE HCL [Suspect]
     Dosage: 75 MG, DAILY, ORAL; 150 MG, DAILY, ORAL
     Route: 048

REACTIONS (4)
  - DRUG INTERACTION POTENTIATION [None]
  - HYPERTENSION [None]
  - MYDRIASIS [None]
  - TACHYCARDIA [None]
